FAERS Safety Report 17597468 (Version 1)
Quarter: 2020Q1

REPORT INFORMATION
  Report Type: Spontaneous
  Country: US (occurrence: US)
  Receive Date: 20200330
  Receipt Date: 20200330
  Transmission Date: 20200409
  Serious: No
  Sender: FDA-Public Use
  Company Number: NVSC2020US086452

PATIENT
  Age: 4 Year
  Sex: Male

DRUGS (3)
  1. CLARITHROMYCIN. [Suspect]
     Active Substance: CLARITHROMYCIN
     Indication: ANTIBIOTIC THERAPY
     Dosage: 15 MG/KG, QD  PER OS (PO) DIVIDED Q12H
     Route: 065
  2. AMIKACIN. [Concomitant]
     Active Substance: AMIKACIN
     Indication: ANTIBIOTIC THERAPY
     Dosage: 15 MG/KG
     Route: 042
  3. CEFOXITIN [Concomitant]
     Active Substance: CEFOXITIN SODIUM
     Indication: ANTIBIOTIC THERAPY
     Dosage: 80 MG/KG, QD(DIVIDED Q8H)
     Route: 042

REACTIONS (1)
  - Drug resistance [Unknown]
